FAERS Safety Report 5760263-7 (Version None)
Quarter: 2008Q2

REPORT INFORMATION
  Report Type: 
  Country: None (occurrence: None)
  Receive Date: 20080602
  Receipt Date: 20080527
  Transmission Date: 20081010
  Serious: Yes (Death)
  Sender: FDA-Public Use
  Company Number: 2008-178015-NL

PATIENT
  Age: 78 Year
  Sex: Female

DRUGS (3)
  1. ROCURONIUM BROMIDE [Suspect]
     Indication: ENDOTRACHEAL INTUBATION
     Dosage: INTRAVENOUS
     Route: 042
     Dates: start: 20080523, end: 20080523
  2. REMIFENTANIL HYDROCHLORIDE [Suspect]
     Indication: ANALGESIA
     Dosage: INTRAVENOUS NOS
     Route: 042
     Dates: start: 20080523, end: 20080523
  3. PROPOFOL [Concomitant]

REACTIONS (2)
  - NEUROMUSCULAR BLOCK PROLONGED [None]
  - SHOCK [None]
